FAERS Safety Report 26130901 (Version 2)
Quarter: 2025Q4

REPORT INFORMATION
  Report Type: Report from Study
  Country: PR (occurrence: PR)
  Receive Date: 20251208
  Receipt Date: 20251218
  Transmission Date: 20260119
  Serious: Yes (Other)
  Sender: MALLINCKRODT
  Company Number: PR-MALLINCKRODT-MNK202507673

PATIENT
  Age: 55 Year
  Sex: Female

DRUGS (3)
  1. CORTICOTROPIN [Suspect]
     Active Substance: CORTICOTROPIN
     Indication: Scleritis
     Dosage: 80 UNITS
     Route: 058
  2. METOPROLOL [Concomitant]
     Active Substance: METOPROLOL
     Indication: Blood pressure measurement
     Dosage: UNKNOWN
  3. METFORMIN [Concomitant]
     Active Substance: METFORMIN HYDROCHLORIDE
     Indication: Diabetes mellitus
     Dosage: UNKNOWN

REACTIONS (9)
  - Scleritis [Recovered/Resolved]
  - Condition aggravated [Recovered/Resolved]
  - Panic attack [Unknown]
  - Anxiety [Unknown]
  - Fear of injection [Unknown]
  - Hormone level abnormal [Unknown]
  - Feeling abnormal [Unknown]
  - Asthma [Unknown]
  - Product dose omission issue [Unknown]

NARRATIVE: CASE EVENT DATE: 20251110
